FAERS Safety Report 7112827-6 (Version None)
Quarter: 2010Q4

REPORT INFORMATION
  Report Type: 
  Country: None (occurrence: None)
  Receive Date: 20101119
  Receipt Date: 20101110
  Transmission Date: 20110411
  Serious: Yes (Other)
  Sender: FDA-Public Use
  Company Number: DE-JNJFOC-20101006123

PATIENT
  Age: 16 Year
  Sex: Male

DRUGS (3)
  1. REMICADE [Suspect]
     Indication: COLITIS ULCERATIVE
     Route: 042
  2. PREDNISOLONE [Concomitant]
     Indication: ILL-DEFINED DISORDER
     Route: 048
  3. CYCLOSPORINE [Concomitant]
     Indication: ILL-DEFINED DISORDER
     Route: 048

REACTIONS (1)
  - SUDDEN HEARING LOSS [None]
